FAERS Safety Report 9140643 (Version 6)
Quarter: 2014Q2

REPORT INFORMATION
  Report Type: Spontaneous
  Country: US (occurrence: US)
  Receive Date: 20130305
  Receipt Date: 20140513
  Transmission Date: 20141212
  Serious: Yes (Hospitalization, Other)
  Sender: FDA-Public Use
  Company Number: US-GLAXOSMITHKLINE-A1008191A

PATIENT
  Age: 62 Year
  Sex: Female

DRUGS (2)
  1. FLOLAN [Suspect]
     Indication: PULMONARY ARTERIAL HYPERTENSION
     Dosage: 12NGKM CONTINUOUS
     Route: 042
     Dates: start: 20121214
  2. WARFARIN [Concomitant]

REACTIONS (6)
  - Pyrexia [Recovered/Resolved]
  - Atypical pneumonia [Recovered/Resolved]
  - Medical device complication [Not Recovered/Not Resolved]
  - Infusion site erythema [Unknown]
  - Arthralgia [Unknown]
  - Gout [Unknown]
